FAERS Safety Report 9580605 (Version 1)
Quarter: 2013Q3

REPORT INFORMATION
  Report Type: Spontaneous
  Country: US (occurrence: None)
  Receive Date: 20130916
  Receipt Date: 20130916
  Transmission Date: 20140515
  Serious: Yes (Other)
  Sender: FDA-Public Use
  Company Number: JPI-P-033447

PATIENT
  Age: 53 Year
  Sex: Male
  Weight: 102.06 kg

DRUGS (7)
  1. XYREM [Suspect]
     Indication: CATAPLEXY
     Route: 048
     Dates: start: 201206
  2. LOSARTAN [Concomitant]
  3. AMPHETAMINE ASPARTATE; AMPHETAMINE SULFATE; DETROAMPHETAMINE SACCHARATE; DEXTROAMPHETAMINE SULFATE [Concomitant]
  4. PROPRANOLOL [Concomitant]
  5. LEVOTHYROXINE [Concomitant]
  6. METFORMIN [Concomitant]
  7. BUTORPHANOL [Concomitant]

REACTIONS (6)
  - Depression [None]
  - Bipolar disorder [None]
  - Gastrooesophageal reflux disease [None]
  - Cough [None]
  - Anxiety [None]
  - Stress [None]
